FAERS Safety Report 24393702 (Version 2)
Quarter: 2024Q4

REPORT INFORMATION
  Report Type: Spontaneous
  Country: US (occurrence: US)
  Receive Date: 20241003
  Receipt Date: 20241025
  Transmission Date: 20250114
  Serious: Yes (Hospitalization, Other)
  Sender: TEVA
  Company Number: US-TEVA-VS-3249012

PATIENT
  Age: 29 Year
  Sex: Male

DRUGS (11)
  1. LORAZEPAM [Suspect]
     Active Substance: LORAZEPAM
     Indication: Autism spectrum disorder
     Route: 065
  2. OLANZAPINE [Suspect]
     Active Substance: OLANZAPINE
     Indication: Autism spectrum disorder
     Route: 065
  3. NALTREXONE [Suspect]
     Active Substance: NALTREXONE
     Indication: Autism spectrum disorder
     Route: 065
  4. ARIPIPRAZOLE [Suspect]
     Active Substance: ARIPIPRAZOLE
     Indication: Autism spectrum disorder
     Route: 065
  5. CLONAZEPAM [Suspect]
     Active Substance: CLONAZEPAM
     Indication: Autism spectrum disorder
     Route: 065
  6. RISPERIDONE [Suspect]
     Active Substance: RISPERIDONE
     Indication: Autism spectrum disorder
     Dosage: NIGHTLY
     Route: 065
  7. RISPERIDONE [Suspect]
     Active Substance: RISPERIDONE
     Indication: Autism spectrum disorder
     Route: 065
  8. BUSPIRONE [Suspect]
     Active Substance: BUSPIRONE HYDROCHLORIDE
     Indication: Autism spectrum disorder
     Route: 065
  9. SERTRALINE [Suspect]
     Active Substance: SERTRALINE HYDROCHLORIDE
     Indication: Autism spectrum disorder
     Dosage: UP TO 50?MG DAILY
     Route: 065
  10. SERTRALINE [Suspect]
     Active Substance: SERTRALINE HYDROCHLORIDE
     Indication: Autism spectrum disorder
     Route: 065
  11. VALPROATE [Suspect]
     Active Substance: VALPROIC ACID
     Indication: Autism spectrum disorder
     Dosage: FORMULATION:  EXTENDED RELEASE
     Route: 065

REACTIONS (11)
  - Sedation [Recovered/Resolved]
  - Hyperammonaemia [Recovered/Resolved]
  - Disinhibition [Recovered/Resolved]
  - Gastrointestinal disorder [Recovered/Resolved]
  - Akathisia [Recovered/Resolved]
  - Tremor [Recovered/Resolved]
  - Salivary hypersecretion [Recovered/Resolved]
  - Confusional state [Recovered/Resolved]
  - Nausea [Recovered/Resolved]
  - Parotitis [Recovered/Resolved]
  - Aggression [Recovered/Resolved]
